FAERS Safety Report 18951231 (Version 2)
Quarter: 2021Q1

REPORT INFORMATION
  Report Type: Report from Study
  Country: None (occurrence: NO)
  Receive Date: 20210228
  Receipt Date: 20210315
  Transmission Date: 20210420
  Serious: Yes (Hospitalization)
  Sender: FDA-Public Use
  Company Number: NO-ABBVIE-21K-122-3789336-00

PATIENT
  Sex: Female

DRUGS (2)
  1. DUODOPA [Suspect]
     Active Substance: CARBIDOPA\LEVODOPA
     Indication: PRODUCT USED FOR UNKNOWN INDICATION
     Route: 050
     Dates: start: 20201201
  2. DUODOPA [Suspect]
     Active Substance: CARBIDOPA\LEVODOPA
     Dosage: 2.5 ML CONTINUOUS DOSE, 3.0 ML BOLUS DOSE
     Route: 050
     Dates: start: 202103

REACTIONS (3)
  - Device issue [Unknown]
  - On and off phenomenon [Not Recovered/Not Resolved]
  - Dose calculation error [Recovering/Resolving]

NARRATIVE: CASE EVENT DATE: 202102
